FAERS Safety Report 15703629 (Version 3)
Quarter: 2019Q1

REPORT INFORMATION
  Report Type: Report from Study
  Country: US (occurrence: US)
  Receive Date: 20181210
  Receipt Date: 20190304
  Transmission Date: 20190417
  Serious: Yes (Hospitalization, Other)
  Sender: FDA-Public Use
  Company Number: US-BAYER-2018-208634

PATIENT
  Age: 62 Year
  Sex: Female

DRUGS (15)
  1. FUROSEMIDE. [Concomitant]
     Active Substance: FUROSEMIDE
     Dosage: UNK
  2. LOSARTAN POTASSIUM. [Concomitant]
     Active Substance: LOSARTAN POTASSIUM
     Dosage: UNK
  3. NEXAVAR [Suspect]
     Active Substance: SORAFENIB
     Indication: SMALL INTESTINE CARCINOMA
     Dosage: 400 MG, BID
     Route: 048
     Dates: start: 20180901
  4. NEXAVAR [Suspect]
     Active Substance: SORAFENIB
     Indication: SMALL INTESTINE CARCINOMA
     Dosage: 600 MG, QD (1 TAB IN AM AND 2 TAB IN PM)
     Route: 048
  5. NEXAVAR [Suspect]
     Active Substance: SORAFENIB
     Indication: SMALL INTESTINE CARCINOMA
     Dosage: 200
     Route: 048
     Dates: start: 20180919
  6. GABAPENTIN. [Concomitant]
     Active Substance: GABAPENTIN
     Dosage: UNK
  7. GLIPIZIDE. [Concomitant]
     Active Substance: GLIPIZIDE
     Dosage: UNK
  8. VITAMIN D3 [Concomitant]
     Active Substance: CHOLECALCIFEROL
     Dosage: UNK
  9. B-100 COMPLEX [Concomitant]
     Active Substance: DEXPANTHENOL\NIACINAMIDE\PYRIDOXINE HYDROCHLORIDE\RIBOFLAVIN 5^-PHOSPHATE SODIUM\THIAMINE HYDROCHLORIDE
     Dosage: UNK
  10. OMEPRAZOLE. [Concomitant]
     Active Substance: OMEPRAZOLE
     Dosage: UNK
  11. QUINAPRIL. [Concomitant]
     Active Substance: QUINAPRIL
     Dosage: UNK
  12. FERODAN [Concomitant]
  13. LACTULOSE. [Concomitant]
     Active Substance: LACTULOSE
  14. SPIRONOLACTONE. [Concomitant]
     Active Substance: SPIRONOLACTONE
     Dosage: UNK
  15. RANITIDINE. [Concomitant]
     Active Substance: RANITIDINE
     Dosage: UNK

REACTIONS (25)
  - Decreased appetite [Not Recovered/Not Resolved]
  - Ammonia increased [Recovering/Resolving]
  - Urinary tract infection [Unknown]
  - Depression [Not Recovered/Not Resolved]
  - Hypoaesthesia oral [Not Recovered/Not Resolved]
  - Ammonia abnormal [Unknown]
  - Anxiety [Not Recovered/Not Resolved]
  - Product use in unapproved indication [None]
  - Anxiety [Recovering/Resolving]
  - Tremor [Unknown]
  - Pain in extremity [Unknown]
  - Amnesia [Not Recovered/Not Resolved]
  - Insomnia [Not Recovered/Not Resolved]
  - Fear [Not Recovered/Not Resolved]
  - Off label use [None]
  - Anxiety [Not Recovered/Not Resolved]
  - Hallucination [Not Recovered/Not Resolved]
  - Mental disorder [Recovering/Resolving]
  - Thrombosis [None]
  - Tremor [Not Recovered/Not Resolved]
  - Weight decreased [Not Recovered/Not Resolved]
  - Hypoaesthesia [Not Recovered/Not Resolved]
  - Food refusal [Recovering/Resolving]
  - Speech disorder [Unknown]
  - Chest pain [Unknown]

NARRATIVE: CASE EVENT DATE: 2018
